FAERS Safety Report 16932458 (Version 1)
Quarter: 2019Q4

REPORT INFORMATION
  Report Type: Spontaneous
  Country: US (occurrence: US)
  Receive Date: 20191017
  Receipt Date: 20191017
  Transmission Date: 20200122
  Serious: Yes (Death, Hospitalization, Other)
  Sender: FDA-Public Use
  Company Number: US-PRINSTON PHARMACEUTICAL INC.-2019PRN00871

PATIENT
  Age: 28 Year
  Sex: Male

DRUGS (2)
  1. BUPROPION. [Suspect]
     Active Substance: BUPROPION
     Dosage: 30 TABLETS
     Route: 048
  2. DEPAKOTE [Concomitant]
     Active Substance: DIVALPROEX SODIUM
     Route: 048

REACTIONS (6)
  - Overdose [Not Recovered/Not Resolved]
  - Status epilepticus [Not Recovered/Not Resolved]
  - Cardiac arrest [Fatal]
  - Neurotoxicity [Fatal]
  - Completed suicide [Fatal]
  - Cardiotoxicity [Fatal]
